FAERS Safety Report 6051220-4 (Version None)
Quarter: 2009Q1

REPORT INFORMATION
  Report Type: 
  Country: None (occurrence: None)
  Receive Date: 20090121
  Receipt Date: 20090121
  Transmission Date: 20090719
  Serious: No
  Sender: FDA-Public Use
  Company Number: None

PATIENT
  Age: 44 Year
  Sex: Female
  Weight: 72.6 kg

DRUGS (1)
  1. DOXORUBICIN HCL [Suspect]
     Indication: NEOPLASM MALIGNANT
     Dosage: 70 MG X1 IV
     Route: 042
     Dates: start: 20081124

REACTIONS (3)
  - PAIN [None]
  - RASH GENERALISED [None]
  - SKIN EXFOLIATION [None]
